FAERS Safety Report 8989019 (Version 1)
Quarter: 2012Q4

REPORT INFORMATION
  Report Type: Spontaneous
  Country: US (occurrence: None)
  Receive Date: 20121224
  Receipt Date: 20121224
  Transmission Date: 20130627
  Serious: Yes (Hospitalization)
  Sender: FDA-Public Use
  Company Number: None

PATIENT
  Age: 78 Year
  Sex: Male
  Weight: 75 kg

DRUGS (2)
  1. VANCOMYCIN [Suspect]
     Indication: THROMBOPHLEBITIS
     Dosage: 1000 BID IV
     Route: 042
     Dates: start: 20121020, end: 20121106
  2. VANCOMYCIN [Suspect]
     Indication: INFECTION MRSA
     Dosage: 1000 BID IV
     Route: 042
     Dates: start: 20121020, end: 20121106

REACTIONS (1)
  - Renal failure acute [None]
